FAERS Safety Report 8622413-4 (Version None)
Quarter: 2012Q3

REPORT INFORMATION
  Report Type: 
  Country: None (occurrence: None)
  Receive Date: 20120827
  Receipt Date: 20120821
  Transmission Date: 20120928
  Serious: No
  Sender: FDA-Public Use
  Company Number: US-BIOGENIDEC-2012BI032898

PATIENT
  Age: 28 Year
  Sex: Female

DRUGS (2)
  1. TYSABRI [Suspect]
     Indication: MULTIPLE SCLEROSIS
     Route: 042
     Dates: start: 20120718
  2. AVONEX [Concomitant]
     Indication: MULTIPLE SCLEROSIS
     Route: 030
     Dates: start: 20060806

REACTIONS (7)
  - BACK PAIN [None]
  - MULTIPLE SCLEROSIS [None]
  - HYPERAESTHESIA [None]
  - MUSCLE SPASMS [None]
  - PRURITUS [None]
  - INCREASED APPETITE [None]
  - INCREASED TENDENCY TO BRUISE [None]
